FAERS Safety Report 8930698 (Version 1)
Quarter: 2012Q4

REPORT INFORMATION
  Report Type: Report from Study
  Country: IN (occurrence: IN)
  Receive Date: 20121128
  Receipt Date: 20121128
  Transmission Date: 20130627
  Serious: Yes (Death)
  Sender: FDA-Public Use
  Company Number: IN-ROCHE-1159582

PATIENT
  Age: 61 Year
  Sex: Male
  Weight: 64.3 kg

DRUGS (4)
  1. METHOXY POLYETHYLENE GLYCOL-EPOETIN BETA [Suspect]
     Indication: NEPHROGENIC ANAEMIA
     Route: 065
  2. HOSIT [Concomitant]
     Indication: ANAEMIA
     Route: 048
     Dates: start: 2012
  3. FOLVITE [Concomitant]
     Indication: ANAEMIA
     Route: 048
     Dates: start: 2012
  4. SEVELAMER CARBONATE [Concomitant]
     Dosage: Drug reported as Sevcar
     Route: 048
     Dates: start: 2012

REACTIONS (1)
  - Sepsis [Fatal]
